FAERS Safety Report 8777046 (Version 2)
Quarter: 2012Q4

REPORT INFORMATION
  Report Type: 
  Country: US (occurrence: US)
  Receive Date: 20120911
  Receipt Date: 20121010
  Transmission Date: 20130627
  Serious: No
  Sender: FDA-Public Use
  Company Number: US-ASTRAZENECA-2012SE64951

PATIENT
  Age: 79 Year
  Sex: Male
  Weight: 75.8 kg

DRUGS (8)
  1. CRESTOR [Suspect]
     Indication: BLOOD CHOLESTEROL INCREASED
     Route: 048
     Dates: start: 2012, end: 20120827
  2. CRESTOR [Suspect]
     Indication: BLOOD TRIGLYCERIDES INCREASED
     Route: 048
     Dates: start: 2012, end: 20120827
  3. SYMBICORT [Concomitant]
     Dosage: 80/4.5 DAILY
     Route: 055
  4. METFORMIN [Concomitant]
  5. ATENOLOL [Concomitant]
  6. ASPIRIN [Concomitant]
  7. VIT D [Concomitant]
  8. COQ10 [Concomitant]

REACTIONS (12)
  - Burning sensation [Not Recovered/Not Resolved]
  - Nausea [Unknown]
  - Pruritus [Unknown]
  - Pain in extremity [Not Recovered/Not Resolved]
  - Burning sensation [Unknown]
  - Dyspnoea [Unknown]
  - Vision blurred [Unknown]
  - Eyelid irritation [Unknown]
  - Visual acuity reduced [Unknown]
  - Blood glucose increased [Unknown]
  - Dysphonia [Unknown]
  - Weight increased [Unknown]
